FAERS Safety Report 6579348-0 (Version None)
Quarter: 2010Q1

REPORT INFORMATION
  Report Type: 
  Country: None (occurrence: None)
  Receive Date: 20100212
  Receipt Date: 20100204
  Transmission Date: 20100710
  Serious: Yes (Other)
  Sender: FDA-Public Use
  Company Number: US-JNJFOC-20090904977

PATIENT
  Sex: Female
  Weight: 77.11 kg

DRUGS (20)
  1. REMICADE [Suspect]
     Indication: RHEUMATOID ARTHRITIS
     Route: 042
     Dates: start: 20020208, end: 20090806
  2. METHOTREXATE [Suspect]
     Indication: RHEUMATOID ARTHRITIS
     Route: 048
  3. PREDNISONE [Concomitant]
  4. METOPROLOL SUCCINATE [Concomitant]
  5. AMLODIPINE [Concomitant]
  6. FOLIC ACID [Concomitant]
  7. DARVOCET-N 100 [Concomitant]
  8. ZETIA [Concomitant]
  9. HYDROCHLOROTHIAZIDE [Concomitant]
  10. ASPIRIN [Concomitant]
  11. BONIVA [Concomitant]
  12. PANTOPRAZOLE [Concomitant]
  13. VITAMIN D [Concomitant]
  14. XYZAL [Concomitant]
  15. ASTELIN [Concomitant]
  16. NASONEX [Concomitant]
  17. TRAVATAN [Concomitant]
     Route: 047
  18. MIRALAX [Concomitant]
  19. OXYCODONE HCL [Concomitant]
  20. GABAPENTIN [Concomitant]
     Route: 048

REACTIONS (1)
  - B-CELL LYMPHOMA [None]
